FAERS Safety Report 11403243 (Version 7)
Quarter: 2019Q3

REPORT INFORMATION
  Report Type: Report from Study
  Country: US (occurrence: US)
  Receive Date: 20150821
  Receipt Date: 20190929
  Transmission Date: 20191004
  Serious: Yes (Hospitalization, Other)
  Sender: FDA-Public Use
  Company Number: PHHY2015US100288

PATIENT
  Age: 45 Year
  Sex: Male
  Weight: 77 kg

DRUGS (1)
  1. GILENYA [Suspect]
     Active Substance: FINGOLIMOD HYDROCHLORIDE
     Indication: MULTIPLE SCLEROSIS
     Dosage: 1 DF, QD
     Route: 048
     Dates: start: 20150814, end: 20190313

REACTIONS (10)
  - Alanine aminotransferase increased [Unknown]
  - Nasopharyngitis [Recovered/Resolved]
  - Chills [Recovered/Resolved]
  - Tinea versicolour [Unknown]
  - Onychomycosis [Unknown]
  - Lymphocyte count decreased [Not Recovered/Not Resolved]
  - Electrocardiogram abnormal [Recovered/Resolved]
  - High density lipoprotein decreased [Unknown]
  - ECG signs of myocardial ischaemia [Recovered/Resolved]
  - White blood cell count decreased [Unknown]

NARRATIVE: CASE EVENT DATE: 20150814
